FAERS Safety Report 13781218 (Version 1)
Quarter: 2017Q3

REPORT INFORMATION
  Report Type: Spontaneous
  Country: US (occurrence: US)
  Receive Date: 20170721
  Receipt Date: 20170721
  Transmission Date: 20171127
  Serious: Yes (Death)
  Sender: FDA-Public Use
  Company Number: None

PATIENT
  Age: 52 Year
  Sex: Female

DRUGS (2)
  1. VELTASSA [Suspect]
     Active Substance: PATIROMER
     Indication: CHRONIC KIDNEY DISEASE
     Dosage: ONE PACKET DAILY ORAL
     Route: 048
     Dates: start: 20170207, end: 20170715
  2. VELTASSA [Suspect]
     Active Substance: PATIROMER
     Indication: HYPERKALAEMIA
     Dosage: ONE PACKET DAILY ORAL
     Route: 048
     Dates: start: 20170207, end: 20170715

REACTIONS (1)
  - Death [None]

NARRATIVE: CASE EVENT DATE: 20170715
